FAERS Safety Report 7466135-4 (Version None)
Quarter: 2011Q2

REPORT INFORMATION
  Report Type: 
  Country: None (occurrence: None)
  Receive Date: 20110509
  Receipt Date: 20110429
  Transmission Date: 20111010
  Serious: Yes (Hospitalization)
  Sender: FDA-Public Use
  Company Number: CL-SANOFI-AVENTIS-2011SA027707

PATIENT
  Sex: Female

DRUGS (3)
  1. INSULIN [Suspect]
     Indication: TYPE 1 DIABETES MELLITUS
     Route: 058
  2. INSULIN [Suspect]
     Indication: TYPE 1 DIABETES MELLITUS
     Route: 058
  3. LANTUS [Concomitant]
     Indication: TYPE 1 DIABETES MELLITUS
     Route: 058

REACTIONS (2)
  - DIABETIC KETOACIDOSIS [None]
  - DRUG ADMINISTRATION ERROR [None]
